FAERS Safety Report 4860853-X (Version None)
Quarter: 2005Q4

REPORT INFORMATION
  Report Type: 
  Country: None (occurrence: None)
  Receive Date: 20051220
  Receipt Date: 20051208
  Transmission Date: 20060501
  Serious: Yes (Hospitalization)
  Sender: FDA-Public Use
  Company Number: FR-BRISTOL-MYERS SQUIBB COMPANY-13209929

PATIENT
  Age: 42 Year
  Sex: Male

DRUGS (3)
  1. REYATAZ [Suspect]
     Indication: HIV INFECTION
     Route: 048
     Dates: end: 20051025
  2. VIREAD [Suspect]
     Route: 048
     Dates: start: 20050429, end: 20051025
  3. EMTRIVA [Suspect]
     Route: 048
     Dates: start: 20050429, end: 20051025

REACTIONS (3)
  - ANAEMIA [None]
  - LEUKOPENIA [None]
  - THROMBOCYTOPENIA [None]
